FAERS Safety Report 9548849 (Version 1)
Quarter: 2013Q2

REPORT INFORMATION
  Report Type: Spontaneous
  Country: US (occurrence: None)
  Receive Date: 20130627
  Receipt Date: 20130627
  Transmission Date: 20140414
  Serious: Yes (Other)
  Sender: FDA-Public Use
  Company Number: 1000043698

PATIENT
  Age: 42 Year
  Sex: Female

DRUGS (14)
  1. LINZESS (LINACLOTIDE) (145 MICROGRAM, CAPSULES) [Suspect]
     Indication: CONSTIPATION
     Dosage: 145 MCG (145 MCG, 1 IN 1 D), ORAL
     Route: 048
     Dates: start: 20130306
  2. ALBUTEROL (ALBUTEROL) (ALBUTEROL) [Concomitant]
  3. KLONOPIN [Concomitant]
  4. CRESTOR (ROSUVASTATIN CALCIUM) (ROSUVASTATIN CALCIUM) [Concomitant]
  5. ZOCOR (SIMVASTATIN) (SIMVASTATIN) [Concomitant]
  6. VERAPAMIL (VERAPAMIL) (VERAPAMIL) [Concomitant]
  7. ACTOSE (PIOGLITAZONE HYDROCHLORIDE) (PIOGLITAZONE HYDROCHLORIDE) [Concomitant]
  8. ATIVAN (LORAZEPAM) (LORAZEPAM) [Concomitant]
  9. AMITIZA (LUBIPROSTONE) (LUBIPROSTONE) [Concomitant]
  10. DEXILANT (DEXLANSOPRAZOLE) (DEXLANSOPRAZOLE) [Concomitant]
  11. BENTYL (DICYCLOVERINE HYDROCHLORIDE) (DICYCLOVIRINE HYDROCHLORIDE) [Concomitant]
  12. PROMETHAZINE (PROMETHAZINE) (PROMETHAZINE) [Concomitant]
  13. NOVOLOG (INSULIN ASPART) (INSULIN ASPART) [Concomitant]
  14. JANUVIA (SITAGLIPTIN PHOSPHATE) (SITAGLIPTIN PHOSPHATE) [Concomitant]

REACTIONS (1)
  - Somnambulism [None]
